FAERS Safety Report 8188453-7 (Version None)
Quarter: 2012Q1

REPORT INFORMATION
  Report Type: 
  Country: None (occurrence: None)
  Receive Date: 20120306
  Receipt Date: 20120227
  Transmission Date: 20120608
  Serious: Yes (Hospitalization)
  Sender: FDA-Public Use
  Company Number: US-MILLENNIUM PHARMACEUTICALS, INC.-2012-01425

PATIENT

DRUGS (5)
  1. VELCADE [Suspect]
     Indication: AMYLOIDOSIS
     Dosage: 1.5 MG/M2, 1/WEEK
  2. CYCLOPHOSPHAMIDE [Suspect]
     Indication: AMYLOIDOSIS
     Dosage: 300 MG/M2, 1/WEEK
     Route: 048
  3. DEXAMETHASONE [Suspect]
     Indication: AMYLOIDOSIS
     Dosage: 40 MG, 1/WEEK
  4. VELCADE [Suspect]
     Dosage: 1.3 MG/M2, CYCLIC
  5. ANTIVIRALS NOS [Concomitant]
     Indication: PROPHYLAXIS

REACTIONS (1)
  - CLOSTRIDIUM DIFFICILE COLITIS [None]
